FAERS Safety Report 13699750 (Version 3)
Quarter: 2017Q3

REPORT INFORMATION
  Report Type: Report from Study
  Country: CA (occurrence: CA)
  Receive Date: 20170629
  Receipt Date: 20170809
  Transmission Date: 20171127
  Serious: Yes (Hospitalization, Other)
  Sender: FDA-Public Use
  Company Number: CA-TAKEDA-2017TUS013518

PATIENT
  Age: 76 Year
  Sex: Female

DRUGS (18)
  1. WARFARINE [Concomitant]
     Active Substance: WARFARIN
     Dosage: UNK
  2. CLOZARIL [Concomitant]
     Active Substance: CLOZAPINE
     Dosage: UNK
  3. TEVA PERDIOL                           /00027401/ [Concomitant]
     Dosage: UNK
  4. RIVA K 20 SR [Concomitant]
     Dosage: UNK
  5. D-TABS [Concomitant]
     Active Substance: CHOLECALCIFEROL
     Dosage: UNK
  6. CALCIUM [Concomitant]
     Active Substance: CALCIUM
     Dosage: UNK
  7. VEDOLIZUMAB [Suspect]
     Active Substance: VEDOLIZUMAB
     Indication: CROHN^S DISEASE
     Dosage: 300 MG, UNK
     Route: 042
     Dates: start: 20161026
  8. PMS FERROUS SULFATE [Concomitant]
     Dosage: UNK
  9. APO METOPROLOL [Concomitant]
     Dosage: UNK
  10. TEVA SOLIFENACIN [Concomitant]
     Dosage: UNK
  11. PANTOPRAZOLE TEVA [Concomitant]
     Active Substance: PANTOPRAZOLE SODIUM
     Dosage: UNK
  12. TEVA RISEDRONATE [Concomitant]
     Active Substance: RISEDRONATE SODIUM
     Dosage: UNK
  13. VIT B 12 [Concomitant]
     Dosage: UNK
  14. SYNTHROID [Concomitant]
     Active Substance: LEVOTHYROXINE SODIUM
     Dosage: UNK
  15. APO OXAZEPAM [Concomitant]
     Dosage: UNK
  16. AERUS [Concomitant]
     Indication: PREMEDICATION
     Dosage: UNK
  17. VEDOLIZUMAB [Suspect]
     Active Substance: VEDOLIZUMAB
     Dosage: 300 MG, Q4WEEKS
     Route: 042
     Dates: start: 20170704
  18. TEVA PREDNISONE [Concomitant]
     Dosage: UNK

REACTIONS (3)
  - Crohn^s disease [Unknown]
  - Off label use [Unknown]
  - Intestinal obstruction [Unknown]

NARRATIVE: CASE EVENT DATE: 201706
